FAERS Safety Report 5032866-9 (Version None)
Quarter: 2006Q2

REPORT INFORMATION
  Report Type: 
  Country: None (occurrence: None)
  Receive Date: 20060622
  Receipt Date: 20060614
  Transmission Date: 20061013
  Serious: Yes (Hospitalization)
  Sender: FDA-Public Use
  Company Number: FR-GLAXOSMITHKLINE-B0427770A

PATIENT
  Age: 47 Year
  Sex: Male

DRUGS (8)
  1. KIVEXA [Suspect]
     Indication: HIV INFECTION
     Dosage: 1UNIT PER DAY
     Route: 048
     Dates: start: 20050902
  2. LEPTICUR [Suspect]
     Dosage: 10MG PER DAY
     Route: 048
     Dates: end: 20060516
  3. PROZAC [Suspect]
     Dosage: 20MG PER DAY
     Route: 048
     Dates: end: 20060516
  4. KALETRA [Suspect]
     Indication: HIV INFECTION
     Dosage: 6UNIT PER DAY
     Route: 048
     Dates: start: 20050902
  5. LEXOMIL [Suspect]
     Dosage: .5TAB PER DAY
     Route: 048
     Dates: end: 20060516
  6. DITROPAN [Suspect]
     Dosage: 3TAB PER DAY
     Route: 048
     Dates: end: 20060516
  7. PRAXILENE [Concomitant]
     Route: 065
     Dates: end: 20060516
  8. MOPRAL [Concomitant]
     Route: 065

REACTIONS (1)
  - STATUS EPILEPTICUS [None]
